FAERS Safety Report 16595652 (Version 1)
Quarter: 2019Q3

REPORT INFORMATION
  Report Type: Spontaneous
  Country: CN (occurrence: CN)
  Receive Date: 20190719
  Receipt Date: 20190719
  Transmission Date: 20191004
  Serious: Yes (Life-Threatening, Hospitalization)
  Sender: FDA-Public Use
  Company Number: CN-ROCHE-2358166

PATIENT
  Age: 85 Year
  Sex: Female

DRUGS (5)
  1. MANNITOL. [Concomitant]
     Active Substance: MANNITOL
  2. HUMAN ALBUMIN [Concomitant]
     Active Substance: ALBUMIN HUMAN
  3. NIMODIPINE. [Concomitant]
     Active Substance: NIMODIPINE
  4. SODIUM CHLORIDE. [Concomitant]
     Active Substance: SODIUM CHLORIDE
     Route: 042
     Dates: start: 20190707, end: 20190707
  5. ACTILYSE [Suspect]
     Active Substance: ALTEPLASE
     Indication: THROMBOLYSIS
     Route: 042
     Dates: start: 20190707

REACTIONS (5)
  - Somnolence [Unknown]
  - Haemorrhage subcutaneous [Unknown]
  - Haematemesis [Unknown]
  - Cerebral haemorrhage [Unknown]
  - Upper gastrointestinal haemorrhage [Unknown]

NARRATIVE: CASE EVENT DATE: 20190707
